FAERS Safety Report 25852146 (Version 1)
Quarter: 2025Q3

REPORT INFORMATION
  Report Type: Spontaneous
  Country: EU (occurrence: EU)
  Receive Date: 20250926
  Receipt Date: 20250926
  Transmission Date: 20251020
  Serious: Yes (Life-Threatening, Hospitalization)
  Sender: ROCHE
  Company Number: None

PATIENT
  Age: 64 Year
  Sex: Male

DRUGS (4)
  1. TECENTRIQ [Suspect]
     Active Substance: ATEZOLIZUMAB
     Indication: Hepatocellular carcinoma
     Dosage: 1200 MG EVERY 21 DAYS COMBINED WITH BEVACIZUMAB
     Route: 042
     Dates: start: 20250716, end: 20250807
  2. BEVACIZUMAB [Suspect]
     Active Substance: BEVACIZUMAB
     Indication: Hepatocellular carcinoma
     Dosage: 15 MG/KG EVERY 21 DAYS
     Route: 042
     Dates: start: 20250716, end: 20250807
  3. ENALAPRIL [Concomitant]
     Active Substance: ENALAPRIL
     Indication: Hypertension
     Route: 048
  4. VALPROIC ACID [Concomitant]
     Active Substance: VALPROIC ACID

REACTIONS (6)
  - Renal failure [Recovering/Resolving]
  - Autoimmune nephritis [Recovering/Resolving]
  - Immune thrombocytopenia [Recovering/Resolving]
  - Pyrexia [Recovered/Resolved]
  - Tubulointerstitial nephritis [Recovering/Resolving]
  - Leukocyturia [Recovering/Resolving]

NARRATIVE: CASE EVENT DATE: 20250818
